FAERS Safety Report 20047113 (Version 1)
Quarter: 2021Q4

REPORT INFORMATION
  Report Type: Spontaneous
  Country: US (occurrence: US)
  Receive Date: 20211109
  Receipt Date: 20211109
  Transmission Date: 20220303
  Serious: No
  Sender: FDA-Public Use
  Company Number: US-ORGANON-O2110USA002262

PATIENT
  Sex: Male

DRUGS (2)
  1. PREGNYL [Suspect]
     Active Substance: CHORIOGONADOTROPIN ALFA
     Dosage: UNK
  2. WATER FOR INJECTION [Suspect]
     Active Substance: WATER
     Dosage: UNK

REACTIONS (3)
  - Product packaging quantity issue [Unknown]
  - Product dose omission issue [Unknown]
  - No adverse event [Unknown]
